FAERS Safety Report 13416675 (Version 3)
Quarter: 2017Q2

REPORT INFORMATION
  Report Type: Spontaneous
  Country: DE (occurrence: DE)
  Receive Date: 20170407
  Receipt Date: 20170525
  Transmission Date: 20170830
  Serious: Yes (Life-Threatening, Hospitalization)
  Sender: FDA-Public Use
  Company Number: DE-BIOGEN-2017BI00382824

PATIENT
  Age: 60 Year
  Sex: Female

DRUGS (4)
  1. DETRUSITOL [Concomitant]
     Active Substance: TOLTERODINE TARTRATE
     Indication: MICTURITION URGENCY
     Route: 048
  2. TROSPIUM-CHLORIDE [Concomitant]
     Indication: MICTURITION URGENCY
     Route: 048
  3. XEPLION [Concomitant]
     Active Substance: PALIPERIDONE PALMITATE
     Indication: SCHIZOAFFECTIVE DISORDER DEPRESSIVE TYPE
     Route: 030
  4. FAMPYRA [Suspect]
     Active Substance: DALFAMPRIDINE
     Indication: GAIT DISTURBANCE
     Route: 048
     Dates: start: 20161125

REACTIONS (2)
  - Cardiac arrest [Recovered/Resolved with Sequelae]
  - Procedural complication [Unknown]

NARRATIVE: CASE EVENT DATE: 20170210
